FAERS Safety Report 10902340 (Version 1)
Quarter: 2015Q1

REPORT INFORMATION
  Report Type: Spontaneous
  Country: US (occurrence: US)
  Receive Date: 20150310
  Receipt Date: 20150310
  Transmission Date: 20150721
  Serious: No
  Sender: FDA-Public Use
  Company Number: US-PFIZER INC-2015081439

PATIENT

DRUGS (2)
  1. ADVIL [Suspect]
     Active Substance: IBUPROFEN
  2. GLUTEN [Suspect]
     Active Substance: WHEAT GLUTEN

REACTIONS (2)
  - Product label issue [Unknown]
  - Reaction to drug excipients [Unknown]
